FAERS Safety Report 9071072 (Version 1)
Quarter: 2013Q1

REPORT INFORMATION
  Report Type: Spontaneous
  Country: US (occurrence: US)
  Receive Date: 20130206
  Receipt Date: 20130206
  Transmission Date: 20140127
  Serious: No
  Sender: FDA-Public Use
  Company Number: US-ALLERGAN-1208437US

PATIENT
  Sex: Female

DRUGS (3)
  1. RESTASIS? [Suspect]
     Indication: DRY EYE
     Dosage: 2 UNK, UNK
     Route: 047
  2. LOTREL                             /01289101/ [Concomitant]
     Indication: HYPERTENSION
     Dosage: UNK
     Route: 048
  3. ADVAIR [Concomitant]
     Indication: ASTHMA
     Dosage: UNK

REACTIONS (3)
  - Skin disorder [Recovered/Resolved]
  - Swelling face [Recovered/Resolved]
  - Skin wrinkling [Recovered/Resolved]
